FAERS Safety Report 8543730 (Version 10)
Quarter: 2013Q2

REPORT INFORMATION
  Report Type: Spontaneous
  Country: JP (occurrence: JP)
  Receive Date: 20120503
  Receipt Date: 20130417
  Transmission Date: 20140414
  Serious: Yes (Death, Life-Threatening, Hospitalization)
  Sender: FDA-Public Use
  Company Number: JP-MPIJNJ-2012-03083

PATIENT
  Sex: 0

DRUGS (23)
  1. VELCADE [Suspect]
     Indication: PLASMA CELL MYELOMA
     Dosage: 1.824 MG/M2, UNK
     Route: 042
     Dates: start: 20120316, end: 20120412
  2. VELCADE [Suspect]
     Indication: CARDIAC AMYLOIDOSIS
  3. VELCADE [Suspect]
     Indication: RENAL AMYLOIDOSIS
  4. FENTANYL [Suspect]
     Indication: CANCER PAIN
     Dosage: 12.5 UNK, UNK
     Route: 062
     Dates: start: 20120425, end: 20120425
  5. DEXAMETHASONE [Concomitant]
     Indication: PLASMA CELL MYELOMA
     Dosage: 20 MG, UNK
     Route: 048
     Dates: start: 20120314, end: 20120413
  6. NU LOTAN [Concomitant]
     Indication: RENAL FAILURE
     Dosage: 50 MG, QD
     Route: 048
     Dates: start: 20120106, end: 20120416
  7. NU LOTAN [Concomitant]
     Indication: CARDIAC AMYLOIDOSIS
  8. FUROSEMIDE [Concomitant]
     Indication: CARDIAC FAILURE
     Dosage: 40 MG, UNK
     Route: 048
     Dates: start: 20120106, end: 20120416
  9. FUROSEMIDE [Concomitant]
     Indication: RENAL FAILURE ACUTE
  10. ARTIST [Concomitant]
     Indication: CARDIAC FAILURE
     Dosage: 2.5 G, QD
     Route: 048
     Dates: start: 20120116, end: 20120416
  11. EPLERENONE [Concomitant]
     Indication: CARDIAC FAILURE
     Dosage: 50 MG, UNK
     Route: 048
     Dates: start: 20120218, end: 20120416
  12. FLUITRAN [Concomitant]
     Indication: CARDIAC FAILURE
     Dosage: 1 MG, QD
     Route: 048
     Dates: start: 20120221, end: 20120416
  13. AMIODARONE HYDROCHLORIDE [Concomitant]
     Indication: CARDIAC AMYLOIDOSIS
     Dosage: 200 MG, QD
     Route: 048
     Dates: start: 20020201, end: 20120416
  14. TOLVAPTAN [Concomitant]
     Indication: CARDIAC FAILURE
     Dosage: 7.5 MG, QD
     Route: 048
     Dates: start: 20120223, end: 20120416
  15. VALACICLOVIR [Concomitant]
     Indication: PLASMA CELL MYELOMA
     Dosage: 500 MG, QD
     Route: 048
     Dates: start: 20120314, end: 20120416
  16. HUMAN ALBUMIN                      /01102501/ [Concomitant]
     Indication: RENAL FAILURE ACUTE
     Dosage: 25 G, QD
     Route: 042
     Dates: start: 20120223, end: 20120226
  17. OMEPRAZOLE [Concomitant]
     Indication: GASTRIC ULCER
     Dosage: 20 MG, QD
     Route: 048
     Dates: start: 20120323, end: 20120416
  18. AZOSEMIDE [Concomitant]
     Indication: RENAL FAILURE
     Dosage: 50 MG, UNK
     Route: 048
     Dates: start: 20020103, end: 20120416
  19. AZOSEMIDE [Concomitant]
     Indication: CARDIAC FAILURE
  20. PURSENNID /00142207/ [Concomitant]
     Dosage: 12 MG, UNK
     Route: 048
     Dates: start: 20120111
  21. ZYVOX [Concomitant]
     Indication: STAPHYLOCOCCAL SEPSIS
     Dosage: 60 MG, BID
     Route: 048
     Dates: start: 20120402, end: 20120416
  22. SENNOSIDE                          /00571902/ [Concomitant]
     Indication: CONSTIPATION
     Dosage: 12 MG, UNK
     Route: 048
     Dates: start: 20120111, end: 20120416
  23. DOPAMINE HYDROCHLORIDE [Concomitant]
     Indication: STAPHYLOCOCCAL SEPSIS
     Dosage: 225 MG, QD
     Dates: start: 20120401, end: 20120502

REACTIONS (10)
  - Cardiac amyloidosis [Fatal]
  - Depressed level of consciousness [Not Recovered/Not Resolved]
  - Cardiac failure [Fatal]
  - Staphylococcal sepsis [Recovered/Resolved]
  - Platelet count decreased [Not Recovered/Not Resolved]
  - Liver disorder [Not Recovered/Not Resolved]
  - Cheyne-Stokes respiration [Not Recovered/Not Resolved]
  - Septic shock [Recovered/Resolved]
  - Cancer pain [Not Recovered/Not Resolved]
  - Pain [Not Recovered/Not Resolved]
